FAERS Safety Report 4606142-X (Version None)
Quarter: 2005Q1

REPORT INFORMATION
  Report Type: 
  Country: None (occurrence: None)
  Receive Date: 20050303
  Receipt Date: 20041209
  Transmission Date: 20050727
  Serious: No
  Sender: FDA-Public Use
  Company Number: 200421148BWH

PATIENT
  Age: 56 Year
  Sex: Male

DRUGS (11)
  1. LEVITRA [Suspect]
     Indication: ERECTILE DYSFUNCTION
     Dosage: 10 MG, TOTAL DAILY, ORAL
     Route: 048
     Dates: start: 20041206
  2. VIAGRA [Concomitant]
  3. ATENOLOL [Concomitant]
  4. LINOPRIL [Concomitant]
  5. NORVASC [Concomitant]
  6. GLUCOPHAGE [Concomitant]
  7. AMARYL [Concomitant]
  8. ACTOS [Concomitant]
  9. ASPIRIN [Concomitant]
  10. PRAVACHOL [Concomitant]
  11. CLONOPIN [Concomitant]

REACTIONS (1)
  - HEADACHE [None]
